FAERS Safety Report 8038551-3 (Version None)
Quarter: 2012Q1

REPORT INFORMATION
  Report Type: 
  Country: None (occurrence: None)
  Receive Date: 20120111
  Receipt Date: 20111202
  Transmission Date: 20120608
  Serious: No
  Sender: FDA-Public Use
  Company Number: US-AMGEN-USASP2011064275

PATIENT
  Age: 49 Year
  Sex: Female

DRUGS (8)
  1. METHOTREXATE [Concomitant]
  2. FOLIC ACID [Concomitant]
  3. ALLEGRA [Concomitant]
     Dosage: 1 MG, QD
  4. PREMARIN [Concomitant]
  5. PREDNISONE TAB [Concomitant]
  6. ENBREL [Suspect]
     Indication: PSORIATIC ARTHROPATHY
     Dosage: 50 MG, QWK
     Dates: start: 20111120
  7. AMBIEN [Concomitant]
  8. BENADRYL [Suspect]

REACTIONS (4)
  - INJECTION SITE ERYTHEMA [None]
  - INJECTION SITE SWELLING [None]
  - INJECTION SITE PRURITUS [None]
  - INJECTION SITE REACTION [None]
